FAERS Safety Report 5841975-3 (Version None)
Quarter: 2008Q3

REPORT INFORMATION
  Report Type: 
  Country: None (occurrence: None)
  Receive Date: 20080812
  Receipt Date: 20020206
  Transmission Date: 20090109
  Serious: Yes (Death)
  Sender: FDA-Public Use
  Company Number: US-MERCK-0201USA00180

PATIENT

DRUGS (2)
  1. SINGULAIR [Suspect]
     Indication: ASTHMA
     Route: 064
     Dates: start: 19980101
  2. [COMPOSITION UNSPECIFIED] [Concomitant]
     Route: 064

REACTIONS (1)
  - ABORTION INDUCED [None]
